FAERS Safety Report 13564239 (Version 4)
Quarter: 2017Q3

REPORT INFORMATION
  Report Type: Spontaneous
  Country: TW (occurrence: TW)
  Receive Date: 20170519
  Receipt Date: 20170901
  Transmission Date: 20171127
  Serious: Yes (Hospitalization, Other)
  Sender: FDA-Public Use
  Company Number: TW-AMGEN-TWNSP2017075479

PATIENT
  Age: 83 Year
  Sex: Female

DRUGS (4)
  1. COVAXIN [Concomitant]
     Indication: OSTEOPOROSIS
     Dosage: 70 MG, WEEKLY (QW)
  2. GENCLONE [Concomitant]
     Dosage: 7.5 MG, 1X/DAY (QN)
  3. GINKGOCENTRATE [Concomitant]
     Dosage: 40 MG, 2X/DAY (BID)
  4. ENBREL [Suspect]
     Active Substance: ETANERCEPT
     Indication: RHEUMATOID ARTHRITIS
     Dosage: 25 MG, QW
     Route: 058
     Dates: start: 20131015

REACTIONS (9)
  - Asthma [Recovered/Resolved]
  - Cough [Not Recovered/Not Resolved]
  - Asthenia [Not Recovered/Not Resolved]
  - Decreased appetite [Not Recovered/Not Resolved]
  - Nasopharyngitis [Recovered/Resolved]
  - Hyponatraemia [Recovered/Resolved]
  - Red blood cell sedimentation rate increased [Unknown]
  - Aspartate aminotransferase increased [Unknown]
  - Alanine aminotransferase increased [Unknown]

NARRATIVE: CASE EVENT DATE: 20170508
